FAERS Safety Report 12116220 (Version 2)
Quarter: 2016Q2

REPORT INFORMATION
  Report Type: Report from Study
  Country: DE (occurrence: DE)
  Receive Date: 20160225
  Receipt Date: 20160406
  Transmission Date: 20160815
  Serious: Yes (Death, Life-Threatening, Hospitalization, Other)
  Sender: FDA-Public Use
  Company Number: DE-ABBVIE-16P-062-1566471-00

PATIENT
  Age: 54 Year
  Sex: Female
  Weight: 69.9 kg

DRUGS (2)
  1. DUODOPA [Suspect]
     Active Substance: CARBIDOPA\LEVODOPA
     Indication: PARKINSON^S DISEASE
     Dosage: MD: 6 ML, CRD: 5.3 ML/H, ED: 1.3 ML
     Route: 050
     Dates: start: 20041101
  2. QUETIAPIN [Concomitant]
     Active Substance: QUETIAPINE
     Indication: PSYCHOTIC DISORDER
     Dosage: 2X1
     Route: 050

REACTIONS (8)
  - Gastroenteritis [Recovered/Resolved]
  - Abdominal adhesions [Recovered/Resolved]
  - Respiratory tract infection [Unknown]
  - Hyperventilation [Unknown]
  - Urostomy [Recovered/Resolved]
  - Pneumonia [Fatal]
  - Stoma site inflammation [Recovered/Resolved]
  - Device dislocation [Unknown]

NARRATIVE: CASE EVENT DATE: 2011
